FAERS Safety Report 5093779-X (Version None)
Quarter: 2006Q3

REPORT INFORMATION
  Report Type: 
  Country: None (occurrence: None)
  Receive Date: 20060831
  Receipt Date: 20060824
  Transmission Date: 20061208
  Serious: Yes (Hospitalization, Other)
  Sender: FDA-Public Use
  Company Number: DE-JNJFOC-20060805978

PATIENT
  Age: 42 Year
  Sex: Male
  Weight: 98 kg

DRUGS (4)
  1. REMICADE [Suspect]
     Route: 042
  2. REMICADE [Suspect]
     Indication: CROHN'S DISEASE
     Route: 042
  3. PREDNISONE TAB [Concomitant]
  4. PREDNISONE TAB [Concomitant]
     Indication: CROHN'S DISEASE

REACTIONS (1)
  - MENINGITIS LISTERIA [None]
